FAERS Safety Report 5506424-3 (Version None)
Quarter: 2007Q4

REPORT INFORMATION
  Report Type: 
  Country: None (occurrence: None)
  Receive Date: 20071105
  Receipt Date: 20071102
  Transmission Date: 20080405
  Serious: Yes (Hospitalization)
  Sender: FDA-Public Use
  Company Number: A0691141A

PATIENT
  Age: 48 Year
  Sex: Female

DRUGS (5)
  1. ALLI [Suspect]
     Indication: WEIGHT LOSS DIET
     Route: 048
     Dates: start: 20070815, end: 20071012
  2. LICORICE ROOT [Concomitant]
  3. ASCORBIC ACID [Concomitant]
  4. FLAX SEED OIL [Concomitant]
  5. GLUCOSAMINE [Concomitant]

REACTIONS (8)
  - ABDOMINAL PAIN UPPER [None]
  - BLOOD PRESSURE DECREASED [None]
  - DIARRHOEA [None]
  - DIZZINESS [None]
  - GASTRIC HAEMORRHAGE [None]
  - GASTRIC ULCER HAEMORRHAGE [None]
  - GENERAL PHYSICAL HEALTH DETERIORATION [None]
  - LOSS OF CONSCIOUSNESS [None]
